FAERS Safety Report 24466841 (Version 3)
Quarter: 2024Q4

REPORT INFORMATION
  Report Type: Spontaneous
  Country: CA (occurrence: CA)
  Receive Date: 20241018
  Receipt Date: 20241230
  Transmission Date: 20250114
  Serious: Yes (Other)
  Sender: PFIZER
  Company Number: CA-PFIZER INC-202200458057

PATIENT
  Age: 34 Year
  Sex: Male

DRUGS (1)
  1. ABRILADA [Suspect]
     Active Substance: ADALIMUMAB-AFZB
     Indication: Crohn^s disease
     Dosage: 40 MG WEEKLY
     Route: 058
     Dates: start: 20220511

REACTIONS (2)
  - Intestinal stenosis [Unknown]
  - Off label use [Unknown]
